FAERS Safety Report 16883619 (Version 1)
Quarter: 2019Q4

REPORT INFORMATION
  Report Type: Spontaneous
  Country: CO (occurrence: CO)
  Receive Date: 20191004
  Receipt Date: 20191004
  Transmission Date: 20200122
  Serious: Yes (Other)
  Sender: FDA-Public Use
  Company Number: CO-TEVA-2019-CO-1117001

PATIENT
  Age: 11 Year

DRUGS (3)
  1. EMTHEXATE (METHOTREXATE) [Suspect]
     Active Substance: METHOTREXATE
     Indication: LYMPHOCYTIC LEUKAEMIA
     Route: 065
     Dates: start: 20190823
  2. CYTARABINE. [Suspect]
     Active Substance: CYTARABINE
     Indication: LYMPHOCYTIC LEUKAEMIA
     Route: 065
     Dates: start: 20190823
  3. DEXAMETHASONE. [Suspect]
     Active Substance: DEXAMETHASONE
     Indication: LYMPHOCYTIC LEUKAEMIA
     Route: 065
     Dates: start: 20190823

REACTIONS (5)
  - Hypertension [Unknown]
  - Seizure [Unknown]
  - Hypertensive urgency [Unknown]
  - Headache [Unknown]
  - Post lumbar puncture syndrome [Unknown]
